FAERS Safety Report 9478890 (Version 4)
Quarter: 2014Q1

REPORT INFORMATION
  Report Type: Spontaneous
  Country: US (occurrence: US)
  Receive Date: 20130827
  Receipt Date: 20140324
  Transmission Date: 20141002
  Serious: Yes (Other)
  Sender: FDA-Public Use
  Company Number: US-BAYER-2013-101890

PATIENT
  Age: 63 Year
  Sex: Male
  Weight: 105.67 kg

DRUGS (1)
  1. STIVARGA [Suspect]
     Indication: RECTAL CANCER
     Dosage: 160 MG, QD
     Route: 048
     Dates: start: 20130815, end: 20140109

REACTIONS (4)
  - Burning sensation [None]
  - Tenderness [Not Recovered/Not Resolved]
  - Drug dose omission [None]
  - Palmar-plantar erythrodysaesthesia syndrome [Recovered/Resolved]
